FAERS Safety Report 8431519-4 (Version None)
Quarter: 2012Q2

REPORT INFORMATION
  Report Type: 
  Country: None (occurrence: None)
  Receive Date: 20120607
  Receipt Date: 20120607
  Transmission Date: 20120825
  Serious: Yes (Disabling)
  Sender: FDA-Public Use
  Company Number: None

PATIENT
  Age: 59 Year
  Sex: Female
  Weight: 60 kg

DRUGS (1)
  1. AVELOX [Suspect]
     Indication: SINUSITIS
     Dosage: 400 MG. 1X DAY ORAL 047
     Route: 048
     Dates: start: 20111229, end: 20120103

REACTIONS (10)
  - UVEITIS [None]
  - IRIS DISORDER [None]
  - NO THERAPEUTIC RESPONSE [None]
  - OCULAR HYPERAEMIA [None]
  - PHOTOSENSITIVITY REACTION [None]
  - INTRAOCULAR PRESSURE INCREASED [None]
  - PIGMENT DISPERSION SYNDROME [None]
  - PHOTOPSIA [None]
  - PIGMENTARY GLAUCOMA [None]
  - GLARE [None]
